FAERS Safety Report 5855908-7 (Version None)
Quarter: 2008Q3

REPORT INFORMATION
  Report Type: 
  Country: None (occurrence: None)
  Receive Date: 20080821
  Receipt Date: 20080821
  Transmission Date: 20090109
  Serious: Yes (Life-Threatening)
  Sender: FDA-Public Use
  Company Number: None

PATIENT
  Age: 70 Year
  Sex: Female

DRUGS (1)
  1. AVELOX [Suspect]
     Indication: BRONCHITIS
     Dosage: 400MG  DAILY PO
     Route: 048
     Dates: start: 19850415, end: 20080419

REACTIONS (2)
  - PRURITUS [None]
  - RASH ERYTHEMATOUS [None]
